FAERS Safety Report 20952155 (Version 1)
Quarter: 2022Q2

REPORT INFORMATION
  Report Type: Spontaneous
  Country: US (occurrence: None)
  Receive Date: 20220613
  Receipt Date: 20220613
  Transmission Date: 20220721
  Serious: No
  Sender: FDA-Public Use
  Company Number: None

PATIENT
  Sex: Male

DRUGS (1)
  1. NORDITROPIN [Suspect]
     Active Substance: SOMATROPIN
     Indication: End stage renal disease
     Dosage: 0.2MG ONCE DAILY UNDER THE SKIN?
     Route: 058
     Dates: start: 20220324

REACTIONS (3)
  - Dehydration [None]
  - Dialysis [None]
  - Blood pressure decreased [None]
